FAERS Safety Report 9404882 (Version 1)
Quarter: 2013Q3

REPORT INFORMATION
  Report Type: Spontaneous
  Country: US (occurrence: None)
  Receive Date: 20130716
  Receipt Date: 20130716
  Transmission Date: 20140515
  Serious: Yes (Other)
  Sender: FDA-Public Use
  Company Number: None

PATIENT
  Age: 60 Year
  Sex: Female
  Weight: 83.46 kg

DRUGS (6)
  1. ACARBOSE [Suspect]
     Indication: BLOOD GLUCOSE INCREASED
     Route: 048
     Dates: start: 20121108, end: 20130614
  2. GLIMEPIRIDE [Concomitant]
  3. PIOGLITAZONE HCL [Concomitant]
  4. ATORVASTATIN [Concomitant]
  5. LOSARTAN POTASSIUM [Concomitant]
  6. ATENOLOL [Concomitant]

REACTIONS (2)
  - Paraesthesia [None]
  - Hypoaesthesia [None]
